FAERS Safety Report 8479195-9 (Version None)
Quarter: 2012Q2

REPORT INFORMATION
  Report Type: 
  Country: None (occurrence: None)
  Receive Date: 20120629
  Receipt Date: 20120622
  Transmission Date: 20120825
  Serious: Yes (Hospitalization)
  Sender: FDA-Public Use
  Company Number: US-EISAI INC-E2080-00505-SPO-US

PATIENT

DRUGS (1)
  1. BANZEL [Suspect]
     Dosage: UNKNOWN
     Route: 048

REACTIONS (1)
  - BLOOD POTASSIUM DECREASED [None]
